FAERS Safety Report 4754232-3 (Version None)
Quarter: 2005Q3

REPORT INFORMATION
  Report Type: 
  Country: None (occurrence: None)
  Receive Date: 20050829
  Receipt Date: 20050721
  Transmission Date: 20060218
  Serious: Yes (Other)
  Sender: FDA-Public Use
  Company Number: US-BRISTOL-MYERS SQUIBB COMPANY-13046784

PATIENT
  Age: 46 Year
  Sex: Female
  Weight: 91 kg

DRUGS (3)
  1. GLUCOPHAGE [Suspect]
     Indication: DIABETES MELLITUS NON-INSULIN-DEPENDENT
     Dates: start: 20010101
  2. TOLAZAMIDE [Concomitant]
  3. CLONIDINE [Concomitant]

REACTIONS (9)
  - BILIARY TRACT DISORDER [None]
  - CELLULITIS [None]
  - CONSTIPATION [None]
  - GASTRIC DISORDER [None]
  - MENOPAUSE [None]
  - MENORRHAGIA [None]
  - MENSTRUATION IRREGULAR [None]
  - RASH [None]
  - SKIN DISORDER [None]
